FAERS Safety Report 19679159 (Version 1)
Quarter: 2021Q3

REPORT INFORMATION
  Report Type: Spontaneous
  Country: CA (occurrence: CA)
  Receive Date: 20210810
  Receipt Date: 20210810
  Transmission Date: 20211014
  Serious: Yes (Other)
  Sender: FDA-Public Use
  Company Number: CA-DRREDDYS-SPO/CAN/21/0138563

PATIENT
  Age: 84 Year
  Sex: Female

DRUGS (3)
  1. ZOLEDRONIC [Suspect]
     Active Substance: ZOLEDRONIC ACID
     Indication: PRODUCT USED FOR UNKNOWN INDICATION
     Dosage: 5MG/100ML
     Route: 051
     Dates: start: 20190429
  2. ZOLEDRONIC [Suspect]
     Active Substance: ZOLEDRONIC ACID
     Dosage: 5MG/100 ML
     Route: 051
     Dates: start: 20200608
  3. ZOLEDRONIC [Suspect]
     Active Substance: ZOLEDRONIC ACID
     Dosage: 5MG/100 ML
     Route: 051
     Dates: start: 20210730

REACTIONS (2)
  - Blood pressure increased [Unknown]
  - Hip arthroplasty [Unknown]

NARRATIVE: CASE EVENT DATE: 202008
